FAERS Safety Report 4619244-9 (Version None)
Quarter: 2005Q1

REPORT INFORMATION
  Report Type: 
  Country: None (occurrence: None)
  Receive Date: 20050325
  Receipt Date: 20050317
  Transmission Date: 20050727
  Serious: Yes (Hospitalization)
  Sender: FDA-Public Use
  Company Number: FR-BRISTOL-MYERS SQUIBB COMPANY-12908406

PATIENT
  Age: 70 Year
  Sex: Female

DRUGS (3)
  1. HOLOXAN [Suspect]
     Indication: ENDOMETRIAL CANCER
     Route: 042
     Dates: start: 20050124
  2. UROMITEXAN [Suspect]
     Indication: ENDOMETRIAL CANCER
     Route: 042
     Dates: start: 20050124
  3. DOXORUBICIN HCL [Suspect]
     Indication: ENDOMETRIAL CANCER
     Route: 042
     Dates: start: 20050124

REACTIONS (6)
  - AGITATION [None]
  - APHASIA [None]
  - BLOOD CREATININE INCREASED [None]
  - CONFUSIONAL STATE [None]
  - ENCEPHALOPATHY [None]
  - SOMNOLENCE [None]
